FAERS Safety Report 6707159-1 (Version None)
Quarter: 2010Q2

REPORT INFORMATION
  Report Type: 
  Country: None (occurrence: None)
  Receive Date: 20100429
  Receipt Date: 20100419
  Transmission Date: 20101027
  Serious: Yes (Hospitalization)
  Sender: FDA-Public Use
  Company Number: B0648870A

PATIENT
  Age: 8 Year
  Sex: Female

DRUGS (6)
  1. HYCAMTIN [Suspect]
     Indication: T-CELL TYPE ACUTE LEUKAEMIA
     Dosage: INTRAVENOUS
     Route: 042
  2. VINORELBINE TARTRATE [Suspect]
     Indication: T-CELL TYPE ACUTE LEUKAEMIA
     Dosage: 20 MG/M2 / WEEKLY / INTRAVENOUS
     Route: 042
  3. GRANULOCYTE COL.STIM.FACT [Concomitant]
  4. THIOTEPA [Suspect]
     Indication: T-CELL TYPE ACUTE LEUKAEMIA
     Dosage: 15 MG/M2/ INTRAVENOUS INFUSION
     Route: 042
  5. DEXAMETHASONE [Suspect]
     Indication: T-CELL TYPE ACUTE LEUKAEMIA
     Dosage: 45 MG/M2
  6. CLOFARABINE (FORMULATION UNKNOWN) [Suspect]
     Indication: T-CELL TYPE ACUTE LEUKAEMIA
     Dosage: INTRAVENOUS INFUSION
     Route: 042

REACTIONS (8)
  - BLOOD AMYLASE INCREASED [None]
  - BLOOD CULTURE POSITIVE [None]
  - BONE MARROW FAILURE [None]
  - COLITIS [None]
  - HEPATIC ENZYME INCREASED [None]
  - LIPASE INCREASED [None]
  - LUNG INFECTION [None]
  - VOMITING [None]
